FAERS Safety Report 4335201-4 (Version None)
Quarter: 2004Q2

REPORT INFORMATION
  Report Type: 
  Country: None (occurrence: None)
  Receive Date: 20040408
  Receipt Date: 20040401
  Transmission Date: 20050107
  Serious: Yes (Hospitalization, Other)
  Sender: FDA-Public Use
  Company Number: PHEH2004US03795

PATIENT
  Age: 68 Year
  Sex: Female

DRUGS (10)
  1. ZOMETA [Suspect]
     Indication: METASTASES TO BONE
     Dosage: 4 MG, QMO
     Route: 042
     Dates: start: 20020913
  2. OSCAL [Concomitant]
     Dosage: 500 MG, TID
     Route: 048
  3. MEGACE [Concomitant]
     Route: 048
  4. SYNTHROID [Concomitant]
     Route: 048
  5. VITAMIN B COMPLEX CAP [Concomitant]
     Route: 048
  6. PROSOBEE POWDER [Concomitant]
     Route: 048
  7. ARANESP [Concomitant]
     Dosage: UNK, UNK
  8. ZOFRAN [Concomitant]
  9. XANAX [Concomitant]
  10. DARVOCET-N 100 [Concomitant]
     Route: 048

REACTIONS (6)
  - BLOOD CREATININE INCREASED [None]
  - BLOOD UREA INCREASED [None]
  - FALL [None]
  - HYPOCALCAEMIA [None]
  - RADIUS FRACTURE [None]
  - WRIST SURGERY [None]
